FAERS Safety Report 8757266 (Version 2)
Quarter: 2013Q4

REPORT INFORMATION
  Report Type: Spontaneous
  Country: NL (occurrence: NL)
  Receive Date: 20120828
  Receipt Date: 20131031
  Transmission Date: 20140711
  Serious: Yes (Other)
  Sender: FDA-Public Use
  Company Number: NL-009507513-1208NLD006800

PATIENT
  Age: 52 Year
  Sex: Female
  Weight: 96 kg

DRUGS (10)
  1. TRYPTIZOL [Suspect]
     Dosage: 25 MG, UNK
     Dates: start: 20110104
  2. TRYPTIZOL [Suspect]
     Dosage: 50 MG, UNK
  3. APROVEL [Concomitant]
     Dosage: 300 MG, QD
  4. TEMAZEPAM [Concomitant]
     Dosage: 10 MG, UNK
  5. BEZALIP [Concomitant]
     Dosage: 400 MG, UNK
  6. HYDROCHLOROTHIAZIDE [Concomitant]
     Dosage: 25 MG, UNK
  7. NIFEDIPINE [Concomitant]
     Dosage: 30 MG, UNK
  8. QUINAPRIL HYDROCHLORIDE [Concomitant]
     Dosage: 5 MG, UNK
  9. NOVORAPID PENFILL [Concomitant]
     Dosage: 1 DF, 100E/ML
  10. INSULATARD (INSULIN HUMAN, ISOPHANE) [Concomitant]
     Indication: NEURALGIA
     Dosage: 100IE/ML

REACTIONS (1)
  - Speech disorder [Recovered/Resolved with Sequelae]
